FAERS Safety Report 5874960-6 (Version None)
Quarter: 2008Q3

REPORT INFORMATION
  Report Type: 
  Country: None (occurrence: None)
  Receive Date: 20080908
  Receipt Date: 20080908
  Transmission Date: 20090109
  Serious: No
  Sender: FDA-Public Use
  Company Number: None

PATIENT
  Age: 60 Year
  Sex: Female
  Weight: 104.3273 kg

DRUGS (3)
  1. CYMBALTA [Suspect]
     Indication: ANXIETY
     Dosage: 1 TAB ONCE A DAY
     Dates: start: 20060202, end: 20080905
  2. CYMBALTA [Suspect]
     Indication: DEPRESSION
     Dosage: 1 TAB ONCE A DAY
     Dates: start: 20060202, end: 20080905
  3. CYMBALTA [Suspect]
     Indication: DIABETIC NEUROPATHY
     Dosage: 1 TAB ONCE A DAY
     Dates: start: 20060202, end: 20080905

REACTIONS (2)
  - SKIN DISORDER [None]
  - URINARY TRACT DISORDER [None]
